FAERS Safety Report 6266829-2 (Version None)
Quarter: 2009Q3

REPORT INFORMATION
  Report Type: 
  Country: None (occurrence: None)
  Receive Date: 20090714
  Receipt Date: 20090707
  Transmission Date: 20100115
  Serious: Yes (Other)
  Sender: FDA-Public Use
  Company Number: US-JNJFOC-20090702567

PATIENT
  Sex: Female
  Weight: 45.36 kg

DRUGS (1)
  1. ORTHO EVRA [Suspect]
     Indication: CONTRACEPTION
     Route: 062

REACTIONS (4)
  - ABDOMINAL PAIN [None]
  - ADVERSE EVENT [None]
  - BONE PAIN [None]
  - DIZZINESS [None]
